FAERS Safety Report 13823247 (Version 1)
Quarter: 2017Q3

REPORT INFORMATION
  Report Type: Spontaneous
  Country: DE (occurrence: DE)
  Receive Date: 20170802
  Receipt Date: 20170802
  Transmission Date: 20171127
  Serious: Yes (Hospitalization, Other)
  Sender: FDA-Public Use
  Company Number: DE-009507513-1708DEU000082

PATIENT
  Age: 58 Year
  Sex: Female

DRUGS (1)
  1. OVESTIN 0,5 MG OVULA [Suspect]
     Active Substance: ESTRIOL
     Indication: SMEAR CERVIX ABNORMAL
     Dosage: 1 DF, QD
     Route: 067
     Dates: start: 20170331, end: 20170402

REACTIONS (2)
  - Diverticulitis [Recovered/Resolved]
  - Ileus [Recovered/Resolved]

NARRATIVE: CASE EVENT DATE: 20170403
